FAERS Safety Report 8112667-5 (Version None)
Quarter: 2012Q1

REPORT INFORMATION
  Report Type: 
  Country: None (occurrence: None)
  Receive Date: 20120203
  Receipt Date: 20120123
  Transmission Date: 20120608
  Serious: Yes (Life-Threatening, Hospitalization)
  Sender: FDA-Public Use
  Company Number: ES-ROCHE-768843

PATIENT
  Sex: Female
  Weight: 63.5 kg

DRUGS (27)
  1. PREDNISONE TAB [Concomitant]
  2. COTRIM [Concomitant]
  3. PREDNISONE TAB [Concomitant]
  4. PREDNISONE TAB [Concomitant]
  5. PREDNISONE TAB [Concomitant]
  6. PRAVASTATIN [Concomitant]
  7. ENOXAPARIN [Concomitant]
  8. AMLODIPINE [Concomitant]
  9. OMEPRAZOLE [Concomitant]
  10. FUROSEMIDE [Concomitant]
  11. CITALOPRAM HYDROBROMIDE [Concomitant]
  12. ENALAPRIL MALEATE [Concomitant]
  13. ASPIRIN [Concomitant]
  14. AZATHIOPRINE [Concomitant]
  15. AZATHIOPRINE [Concomitant]
  16. LORAZEPAM [Concomitant]
  17. MYCOPHENOLATE MOFETIL (CELLCEPT) [Suspect]
     Dosage: CURRENT DOSE: 2000 MG
     Route: 065
  18. ALENDRONATE SODIUM [Concomitant]
     Dosage: 70 MG C/ WEEK
  19. NITROGLYCERIN [Concomitant]
  20. CLOPIDOGREL [Concomitant]
  21. MYCOPHENOLATE MOFETIL (CELLCEPT) [Suspect]
  22. MYCOPHENOLATE MOFETIL (CELLCEPT) [Suspect]
  23. MYCOPHENOLATE MOFETIL (CELLCEPT) [Suspect]
  24. CALCIUM/VITAMIN D [Concomitant]
  25. MYCOPHENOLATE MOFETIL (CELLCEPT) [Suspect]
     Indication: ANTI-NEUTROPHIL CYTOPLASMIC ANTIBODY POSITIVE VASCULITIS
     Dosage: PREVIOUS DOSE WAS 3000 MG
     Route: 065
  26. PREDNISONE TAB [Concomitant]
  27. BISOPROLOL [Concomitant]

REACTIONS (5)
  - URINARY TRACT INFECTION [None]
  - LUNG INFILTRATION [None]
  - CYTOMEGALOVIRUS INFECTION [None]
  - ENTEROCOCCAL INFECTION [None]
  - PYREXIA [None]
